FAERS Safety Report 5571011-8 (Version None)
Quarter: 2007Q4

REPORT INFORMATION
  Report Type: 
  Country: None (occurrence: None)
  Receive Date: 20071219
  Receipt Date: 20071210
  Transmission Date: 20080405
  Serious: Yes (Other)
  Sender: FDA-Public Use
  Company Number: DSA_31024_2007

PATIENT
  Sex: Female

DRUGS (5)
  1. VASOTEC [Suspect]
     Indication: HYPERTENSION
     Dosage: (5 MG BID ORAL) (10 MG 1X ORAL), (DF ORAL)
     Route: 048
     Dates: start: 20071104, end: 20071210
  2. VASOTEC [Suspect]
     Indication: HYPERTENSION
     Dosage: (5 MG BID ORAL) (10 MG 1X ORAL), (DF ORAL)
     Route: 048
     Dates: start: 20071210, end: 20071210
  3. VASOTEC [Suspect]
     Indication: HYPERTENSION
     Dosage: (5 MG BID ORAL) (10 MG 1X ORAL), (DF ORAL)
     Route: 048
     Dates: start: 20071211
  4. VASOTEC [Suspect]
     Dosage: (5 MG BID ORAL) (A FEW YEARS)
     Route: 048
     Dates: end: 20071101
  5. LEVOXYL [Concomitant]

REACTIONS (4)
  - BLOOD PRESSURE INCREASED [None]
  - DIARRHOEA [None]
  - INSOMNIA [None]
  - PHARMACEUTICAL PRODUCT COMPLAINT [None]
